FAERS Safety Report 20727084 (Version 3)
Quarter: 2022Q2

REPORT INFORMATION
  Report Type: Other
  Country: DE (occurrence: None)
  Receive Date: 20220419
  Receipt Date: 20220614
  Transmission Date: 20220721
  Serious: Yes (Other)
  Sender: FDA-Public Use
  Company Number: DE-ROCHE-2114420

PATIENT
  Age: 29 Year
  Sex: Female

DRUGS (6)
  1. OCREVUS [Suspect]
     Active Substance: OCRELIZUMAB
     Indication: Relapsing-remitting multiple sclerosis
     Route: 042
     Dates: start: 20180316
  2. OCREVUS [Suspect]
     Active Substance: OCRELIZUMAB
     Dosage: THIRD INFUSION.
     Route: 042
     Dates: start: 20180808
  3. OCREVUS [Suspect]
     Active Substance: OCRELIZUMAB
     Route: 042
     Dates: start: 20210315, end: 20210922
  4. COMIRNATY [Suspect]
     Active Substance: TOZINAMERAN
     Indication: COVID-19 prophylaxis
     Dosage: FIRST DOSE.?SECOND DOSE ON 30/JUN/2021
     Route: 065
     Dates: start: 20210609
  5. TENOFOVIR [Concomitant]
     Active Substance: TENOFOVIR
  6. CORTISONE [Concomitant]
     Active Substance: CORTISONE
     Dosage: FOR 5 DAYS

REACTIONS (23)
  - Blood potassium increased [Recovered/Resolved]
  - Sneezing [Recovered/Resolved]
  - Alopecia [Recovered/Resolved]
  - Hypotension [Recovered/Resolved]
  - Nasopharyngitis [Recovered/Resolved]
  - Dysaesthesia [Recovered/Resolved]
  - Nasopharyngitis [Recovered/Resolved]
  - B-lymphocyte count decreased [Not Recovered/Not Resolved]
  - Maternal exposure during pregnancy [Unknown]
  - Maternal exposure during breast feeding [Unknown]
  - Urinary tract infection [Recovered/Resolved]
  - Myalgia [Recovered/Resolved]
  - Fatigue [Recovered/Resolved]
  - Pain in extremity [Recovered/Resolved]
  - SARS-CoV-2 antibody test negative [Not Recovered/Not Resolved]
  - Chills [Recovered/Resolved]
  - Pyrexia [Recovered/Resolved]
  - Headache [Recovered/Resolved]
  - Off label use [Unknown]
  - Herpes virus infection [Recovered/Resolved]
  - Rash [Recovered/Resolved]
  - Underdose [Unknown]
  - Middle ear inflammation [Recovered/Resolved]

NARRATIVE: CASE EVENT DATE: 20180316
